FAERS Safety Report 7652619-2 (Version None)
Quarter: 2011Q3

REPORT INFORMATION
  Report Type: 
  Country: None (occurrence: None)
  Receive Date: 20110803
  Receipt Date: 20110728
  Transmission Date: 20111222
  Serious: Yes (Other)
  Sender: FDA-Public Use
  Company Number: US-BAYER-2011-066361

PATIENT
  Sex: Female

DRUGS (2)
  1. MIRENA [Suspect]
     Dosage: UNK
     Dates: start: 20110728
  2. MIRENA [Suspect]
     Dosage: UNK
     Dates: start: 20110601

REACTIONS (4)
  - PAIN [None]
  - DEVICE DISLOCATION [None]
  - ABDOMINAL PAIN [None]
  - DEVICE EXPULSION [None]
